FAERS Safety Report 20299886 (Version 1)
Quarter: 2022Q1

REPORT INFORMATION
  Report Type: Spontaneous
  Country: US (occurrence: US)
  Receive Date: 20220105
  Receipt Date: 20220105
  Transmission Date: 20220423
  Serious: No
  Sender: FDA-Public Use
  Company Number: US-AMGEN-USASP2021208444

PATIENT
  Age: 49 Year
  Sex: Female
  Weight: 90.703 kg

DRUGS (1)
  1. NEULASTA [Suspect]
     Active Substance: PEGFILGRASTIM
     Indication: Neutropenia
     Dosage: UNK
     Route: 065
     Dates: start: 2021

REACTIONS (1)
  - Magnetic resonance imaging breast [Unknown]

NARRATIVE: CASE EVENT DATE: 20211228
